FAERS Safety Report 7642525-1 (Version None)
Quarter: 2011Q3

REPORT INFORMATION
  Report Type: 
  Country: None (occurrence: None)
  Receive Date: 20110728
  Receipt Date: 20110714
  Transmission Date: 20111222
  Serious: Yes (Other)
  Sender: FDA-Public Use
  Company Number: TR-TYCO HEALTHCARE/MALLINCKRODT-T201101412

PATIENT
  Sex: Male

DRUGS (1)
  1. METHYLIN ER [Suspect]
     Dosage: UNK

REACTIONS (1)
  - PRIAPISM [None]
